FAERS Safety Report 9320918 (Version 1)
Quarter: 2013Q2

REPORT INFORMATION
  Report Type: Report from Study
  Country: BO (occurrence: BO)
  Receive Date: 20130531
  Receipt Date: 20130531
  Transmission Date: 20140414
  Serious: Yes (Hospitalization)
  Sender: FDA-Public Use
  Company Number: PHHY2012AR104762

PATIENT
  Age: 40 Year
  Sex: Male

DRUGS (2)
  1. GLIVEC [Suspect]
     Indication: CHRONIC MYELOID LEUKAEMIA
     Dosage: 600 MG,DAILY
     Route: 048
     Dates: start: 201003
  2. GLIVEC [Suspect]
     Dosage: 400 MG, DAILY
     Route: 048

REACTIONS (4)
  - Cerebral haemorrhage [Unknown]
  - White blood cell count increased [Unknown]
  - Gingival bleeding [Unknown]
  - Headache [Unknown]
